FAERS Safety Report 19297783 (Version 1)
Quarter: 2021Q2

REPORT INFORMATION
  Report Type: Report from Study
  Country: JP (occurrence: JP)
  Receive Date: 20210525
  Receipt Date: 20210525
  Transmission Date: 20210717
  Serious: Yes (Other)
  Sender: FDA-Public Use
  Company Number: JP-CELLTRION INC.-2021JP006849

PATIENT

DRUGS (8)
  1. CT?P13 [Suspect]
     Active Substance: INFLIXIMAB-DYYB
     Dosage: 440 MILLIGRAM (WEIGHT: 87.9 KG)
     Route: 041
     Dates: start: 20210130, end: 20210130
  2. MESALAZINE [Concomitant]
     Active Substance: MESALAMINE
     Dosage: 3000 MILLIGRAM, QD
     Route: 048
  3. CT?P13 [Suspect]
     Active Substance: INFLIXIMAB-DYYB
     Dosage: 420 MILLIGRAM (WEIGHT: 84 KG)
     Route: 041
     Dates: start: 20190504, end: 20190504
  4. CT?P13 [Suspect]
     Active Substance: INFLIXIMAB-DYYB
     Indication: CROHN^S DISEASE
     Dosage: 435 MILLIGRAM (WEIGHT: 87 KG)
     Route: 041
     Dates: start: 20190112, end: 20190112
  5. CT?P13 [Suspect]
     Active Substance: INFLIXIMAB-DYYB
     Dosage: 425 MILLIGRAM (WEIGHT: 85 KG)
     Route: 041
     Dates: start: 20190309, end: 20190309
  6. SALAZOSULFAPYRIDINE [Concomitant]
     Active Substance: SULFASALAZINE
     Dosage: 1500 MILLIGRAM, QD
     Route: 048
  7. CT?P13 [Suspect]
     Active Substance: INFLIXIMAB-DYYB
     Dosage: 430 MILLIGRAM (WEIGHT: 86 KG)
     Route: 041
     Dates: start: 20190706, end: 20190706
  8. CT?P13 [Suspect]
     Active Substance: INFLIXIMAB-DYYB
     Dosage: 440 MILLIGRAM (WEIGHT: 88 KG)
     Route: 041
     Dates: start: 20191228, end: 20191228

REACTIONS (5)
  - Overdose [Unknown]
  - Product use issue [Unknown]
  - Intestinal obstruction [Recovered/Resolved]
  - Off label use [Unknown]
  - Product use issue [Unknown]

NARRATIVE: CASE EVENT DATE: 20190706
